FAERS Safety Report 19996161 (Version 1)
Quarter: 2021Q4

REPORT INFORMATION
  Report Type: Spontaneous
  Country: FR (occurrence: FR)
  Receive Date: 20211026
  Receipt Date: 20211026
  Transmission Date: 20220303
  Serious: Yes (Hospitalization, Other)
  Sender: FDA-Public Use
  Company Number: FR-ASTELLAS-2015US026401

PATIENT
  Sex: Female

DRUGS (9)
  1. ETOPOSIDE [Suspect]
     Active Substance: ETOPOSIDE
     Indication: Non-Hodgkin^s lymphoma recurrent
     Dosage: 200 MILLIGRAM/SQ. METER, BID (DAY -6 TO DAY -2)
     Route: 042
  2. ETOPOSIDE [Suspect]
     Active Substance: ETOPOSIDE
     Dosage: 400 MILLIGRAM/SQ. METER, QD
     Route: 042
  3. MELPHALAN [Suspect]
     Active Substance: MELPHALAN
     Indication: Non-Hodgkin^s lymphoma recurrent
     Dosage: 140 MILLIGRAM/SQ. METER, UNKNOWN FREQ. (ON DAY -1)
     Route: 065
  4. BENDAMUSTINE HYDROCHLORIDE [Suspect]
     Active Substance: BENDAMUSTINE HYDROCHLORIDE
     Indication: Non-Hodgkin^s lymphoma recurrent
     Dosage: 180 MG/M2, CYCLIC (DAY -7)
     Route: 042
  5. CYTARABINE [Suspect]
     Active Substance: CYTARABINE
     Indication: Non-Hodgkin^s lymphoma recurrent
     Dosage: 200 MILLIGRAM/SQ. METER, BID, (DAY -6 TO DAY -2)
     Route: 065
  6. CYTARABINE [Suspect]
     Active Substance: CYTARABINE
     Dosage: 400 MILLIGRAM/SQ. METER, QD
     Route: 065
  7. ZEVALIN [Suspect]
     Active Substance: IBRITUMOMAB TIUXETAN
     Indication: Non-Hodgkin^s lymphoma recurrent
     Dosage: 1200 INTERNATIONAL UNIT, UNKNOWN FREQ.
     Route: 042
  8. AMIFOSTINE [Concomitant]
     Active Substance: AMIFOSTINE
     Indication: Non-Hodgkin^s lymphoma recurrent
     Dosage: 740 MILLIGRAM/SQ. METER, UNKNOWN FREQ. (ON DAY -1)
     Route: 065
  9. RITUXIMAB [Concomitant]
     Active Substance: RITUXIMAB
     Indication: Stem cell transplant
     Dosage: 250 MG/M2 ON DAY -21, UNKNOWN FREQ.
     Route: 042

REACTIONS (5)
  - Anaemia [Unknown]
  - Febrile neutropenia [Unknown]
  - Mucosal inflammation [Unknown]
  - Thrombocytopenia [Unknown]
  - Product use in unapproved indication [Unknown]
